FAERS Safety Report 25232966 (Version 1)
Quarter: 2025Q2

REPORT INFORMATION
  Report Type: Spontaneous
  Country: US (occurrence: US)
  Receive Date: 20250424
  Receipt Date: 20250424
  Transmission Date: 20250716
  Serious: Yes (Life-Threatening, Hospitalization)
  Sender: Sintetica
  Company Number: US-SINTETICA US LLC-US-SIN-2025-00013

PATIENT
  Age: 84 Year
  Sex: Female
  Weight: 50 kg

DRUGS (4)
  1. LIDOCAINE HYDROCHLORIDE [Suspect]
     Active Substance: LIDOCAINE HYDROCHLORIDE
     Indication: Local anaesthesia
     Route: 042
  2. ROPIVACAINE [Suspect]
     Active Substance: ROPIVACAINE
     Indication: Local anaesthesia
     Route: 042
  3. ACETAMINOPHEN [Concomitant]
     Active Substance: ACETAMINOPHEN
     Indication: Pain
     Route: 042
  4. HYDROMORPHONE [Concomitant]
     Active Substance: HYDROMORPHONE
     Indication: Pain
     Route: 042

REACTIONS (2)
  - Local anaesthetic systemic toxicity [Recovered/Resolved]
  - Cardiac arrest [Recovered/Resolved]
